FAERS Safety Report 5696010-7 (Version None)
Quarter: 2008Q2

REPORT INFORMATION
  Report Type: 
  Country: None (occurrence: None)
  Receive Date: 20080407
  Receipt Date: 20080328
  Transmission Date: 20081010
  Serious: Yes (Other)
  Sender: FDA-Public Use
  Company Number: US-MERCK-0803USA04987

PATIENT
  Age: 18 Month
  Sex: Male

DRUGS (4)
  1. SINGULAIR [Suspect]
     Indication: ASTHMA
     Route: 048
     Dates: start: 20020601, end: 20080328
  2. SINGULAIR [Suspect]
     Indication: HYPERSENSITIVITY
     Route: 048
     Dates: start: 20020601, end: 20080328
  3. FLONASE [Concomitant]
     Route: 065
  4. NASONEX [Concomitant]
     Route: 065

REACTIONS (9)
  - ABNORMAL BEHAVIOUR [None]
  - AUTISM [None]
  - CRYING [None]
  - DEPRESSED MOOD [None]
  - DEVELOPMENTAL DELAY [None]
  - EMOTIONAL DISORDER [None]
  - IMPATIENCE [None]
  - OVERDOSE [None]
  - PERSONALITY CHANGE [None]
